FAERS Safety Report 8759319 (Version 2)
Quarter: 2012Q4

REPORT INFORMATION
  Report Type: 
  Country: US (occurrence: US)
  Receive Date: 20120829
  Receipt Date: 20121023
  Transmission Date: 20130627
  Serious: No
  Sender: FDA-Public Use
  Company Number: US-B.I. PHARMACEUTICALS,INC./RIDGEFIELD-2012-BP-20533BP

PATIENT
  Age: 71 Year
  Sex: Female

DRUGS (7)
  1. ZANTAC COOL MINT (TABLETS) [Suspect]
     Indication: DYSPEPSIA
     Dosage: n
     Route: 048
     Dates: start: 20120820, end: 20120822
  2. BYETTA [Concomitant]
     Indication: DIABETES MELLITUS
     Dosage: 1 mg
     Route: 058
  3. FOSINOPRIL [Concomitant]
     Indication: HYPERTENSION
     Dosage: 10 mg
     Route: 048
  4. LEVEMIR [Concomitant]
     Indication: DIABETES MELLITUS
     Route: 058
  5. METFORMIN [Concomitant]
     Indication: DIABETES MELLITUS
     Dosage: 1000 mg
     Route: 048
  6. XANAX [Concomitant]
     Indication: ANXIETY
     Dosage: 0.5 mg
     Route: 048
  7. ZYRTEC [Concomitant]
     Indication: HYPERSENSITIVITY
     Route: 048

REACTIONS (2)
  - Dyspepsia [Not Recovered/Not Resolved]
  - Product quality issue [Unknown]
